FAERS Safety Report 21420569 (Version 2)
Quarter: 2022Q4

REPORT INFORMATION
  Report Type: Report from Study
  Country: CA (occurrence: CA)
  Receive Date: 20221007
  Receipt Date: 20221018
  Transmission Date: 20230113
  Serious: Yes (Hospitalization)
  Sender: FDA-Public Use
  Company Number: CA-KOREA IPSEN Pharma-2022-25727

PATIENT
  Age: 80 Year
  Sex: Male

DRUGS (2)
  1. LANREOTIDE ACETATE [Suspect]
     Active Substance: LANREOTIDE ACETATE
     Indication: Neuroendocrine tumour
     Dosage: 120MG
     Route: 058
     Dates: start: 20180913, end: 202209
  2. LANREOTIDE ACETATE [Suspect]
     Active Substance: LANREOTIDE ACETATE
     Indication: Carcinoid syndrome

REACTIONS (10)
  - Hospitalisation [Unknown]
  - Post procedural infection [Not Recovered/Not Resolved]
  - Dizziness [Unknown]
  - Red blood cell count decreased [Recovered/Resolved]
  - Back pain [Unknown]
  - Pain in extremity [Unknown]
  - Off label use [Unknown]
  - Off label use [Unknown]
  - Expired product administered [Unknown]
  - Off label use [Unknown]

NARRATIVE: CASE EVENT DATE: 20180913
